FAERS Safety Report 5513874-8 (Version None)
Quarter: 2007Q4

REPORT INFORMATION
  Report Type: 
  Country: None (occurrence: None)
  Receive Date: 20071109
  Receipt Date: 20071109
  Transmission Date: 20080405
  Serious: Yes (Life-Threatening, Hospitalization)
  Sender: FDA-Public Use
  Company Number: None

PATIENT
  Age: 74 Year
  Sex: Female
  Weight: 92.1 kg

DRUGS (9)
  1. ROCURINIUM BROMIDE [Suspect]
     Indication: ANAESTHESIA
     Dosage: 50MG ONCE IV
     Route: 042
     Dates: start: 20070314, end: 20070314
  2. ATENOLOL [Concomitant]
  3. ATORVASTATIN CALCIUM [Concomitant]
  4. RANITIDINE HCL [Concomitant]
  5. CYCLOBENAZPRINE [Concomitant]
  6. LIBRAX [Concomitant]
  7. CELECOXIB [Concomitant]
  8. MULTI-VITAMIN [Concomitant]
  9. CALCIUM [Concomitant]

REACTIONS (7)
  - APNOEA [None]
  - BLOOD PH DECREASED [None]
  - HICCUPS [None]
  - OXYGEN SATURATION DECREASED [None]
  - PCO2 INCREASED [None]
  - PO2 INCREASED [None]
  - POST PROCEDURAL COMPLICATION [None]
